FAERS Safety Report 17407232 (Version 1)
Quarter: 2020Q1

REPORT INFORMATION
  Report Type: Spontaneous
  Country: US (occurrence: US)
  Receive Date: 20200211
  Receipt Date: 20200211
  Transmission Date: 20200409
  Serious: No
  Sender: FDA-Public Use
  Company Number: None

PATIENT
  Age: 24 Year
  Sex: Female
  Weight: 45.36 kg

DRUGS (1)
  1. NEXPLANON [Suspect]
     Active Substance: ETONOGESTREL
     Indication: CONTRACEPTION

REACTIONS (7)
  - Implant site swelling [None]
  - Implant site reaction [None]
  - Device issue [None]
  - Implant site papules [None]
  - Implant site pruritus [None]
  - Implant site erythema [None]
  - Urticaria [None]

NARRATIVE: CASE EVENT DATE: 20200211
